FAERS Safety Report 9210139 (Version 1)
Quarter: 2013Q2

REPORT INFORMATION
  Report Type: Spontaneous
  Country: US (occurrence: US)
  Receive Date: 20130404
  Receipt Date: 20130404
  Transmission Date: 20140414
  Serious: No
  Sender: FDA-Public Use
  Company Number: US-TEVA-395845USA

PATIENT
  Age: 29 Year
  Sex: Female

DRUGS (3)
  1. NUVIGIL [Suspect]
     Indication: NARCOLEPSY
     Dates: start: 20130101
  2. NUVIGIL [Suspect]
     Indication: SLEEP APNOEA SYNDROME
  3. NUVIGIL [Suspect]
     Indication: CATAPLEXY

REACTIONS (9)
  - Nausea [Recovered/Resolved]
  - Headache [Not Recovered/Not Resolved]
  - Dry mouth [Recovered/Resolved]
  - Lip dry [Recovered/Resolved]
  - Lip pruritus [Recovered/Resolved]
  - Cheilitis [Recovered/Resolved]
  - Chapped lips [Recovered/Resolved]
  - Anxiety [Not Recovered/Not Resolved]
  - Agitation [Not Recovered/Not Resolved]
